FAERS Safety Report 14603960 (Version 1)
Quarter: 2018Q1

REPORT INFORMATION
  Report Type: Spontaneous
  Country: FR (occurrence: FR)
  Receive Date: 20180306
  Receipt Date: 20180306
  Transmission Date: 20180509
  Serious: Yes (Hospitalization)
  Sender: FDA-Public Use
  Company Number: FR-CONCORDIA PHARMACEUTICALS INC.-E2B_00010440

PATIENT
  Age: 86 Year
  Sex: Female
  Weight: 55 kg

DRUGS (12)
  1. FENOFIBRATE. [Suspect]
     Active Substance: FENOFIBRATE
     Indication: DYSLIPIDAEMIA
     Route: 048
     Dates: end: 20171205
  2. TANAKAN [Concomitant]
     Active Substance: GINKGO
  3. DIGOXIN. [Suspect]
     Active Substance: DIGOXIN
     Indication: CARDIAC FAILURE
     Route: 048
     Dates: end: 20171207
  4. LEVOTHYROX [Concomitant]
     Active Substance: LEVOTHYROXINE
  5. PHYSIOTENS [Suspect]
     Active Substance: MOXONIDINE
     Indication: HYPERTENSION
     Route: 048
     Dates: end: 20171206
  6. GLICLAZIDE [Suspect]
     Active Substance: GLICLAZIDE
     Indication: DIABETES MELLITUS
     Route: 048
     Dates: end: 20171206
  7. PARACETAMOL [Concomitant]
     Active Substance: ACETAMINOPHEN
  8. RAMIPRIL. [Concomitant]
     Active Substance: RAMIPRIL
  9. CORDARONE [Concomitant]
     Active Substance: AMIODARONE HYDROCHLORIDE
  10. DEXERYL, CR?ME EN TUBE [Concomitant]
  11. METFORMINE [Concomitant]
     Active Substance: METFORMIN HYDROCHLORIDE
  12. DICLOFENAC [Concomitant]
     Active Substance: DICLOFENAC

REACTIONS (4)
  - Nausea [Recovered/Resolved]
  - Vomiting [Recovered/Resolved]
  - Dysphagia [Recovered/Resolved]
  - General physical health deterioration [Recovered/Resolved]

NARRATIVE: CASE EVENT DATE: 20171205
